FAERS Safety Report 6176699-9 (Version None)
Quarter: 2009Q2

REPORT INFORMATION
  Report Type: 
  Country: None (occurrence: None)
  Receive Date: 20090501
  Receipt Date: 20090420
  Transmission Date: 20091009
  Serious: Yes (Other)
  Sender: FDA-Public Use
  Company Number: MA-PFIZER INC-2009200696

PATIENT

DRUGS (5)
  1. LYRICA [Suspect]
     Indication: CERVICOBRACHIAL SYNDROME
     Dosage: 75 MG, 2X/DAY, DAY
     Route: 048
     Dates: start: 20090226, end: 20090306
  2. OMEPRAZOLE [Concomitant]
     Dosage: UNK
     Route: 048
  3. VITANEVRIL [Concomitant]
     Dosage: UNK
     Route: 048
  4. DI-ANTALVIC [Concomitant]
     Dosage: UNK
     Route: 048
  5. FLEXEN [Concomitant]
     Dosage: UNK

REACTIONS (1)
  - CONVULSION [None]
